FAERS Safety Report 5056925-X (Version None)
Quarter: 2006Q2

REPORT INFORMATION
  Report Type: 
  Country: None (occurrence: None)
  Receive Date: 20060622
  Receipt Date: 20060222
  Transmission Date: 20061013
  Serious: Yes (Hospitalization)
  Sender: FDA-Public Use
  Company Number: US-JNJFOC-20040401774

PATIENT
  Age: 45 Year
  Sex: Male
  Weight: 85.7298 kg

DRUGS (20)
  1. DURAGESIC-100 [Suspect]
     Indication: PAIN
     Dosage: SEE IMAGE
     Route: 062
     Dates: start: 20031101, end: 20040105
  2. DURAGESIC-100 [Suspect]
     Indication: PAIN
     Dosage: SEE IMAGE
     Route: 062
     Dates: start: 20040105, end: 20040324
  3. DURAGESIC-100 [Suspect]
     Indication: PAIN
     Dosage: SEE IMAGE
     Route: 062
     Dates: start: 20040326, end: 20040329
  4. DURAGESIC-100 [Suspect]
     Indication: PAIN
     Dosage: SEE IMAGE
     Route: 062
     Dates: start: 20040329
  5. DURAGESIC-100 [Suspect]
  6. CELEXA [Concomitant]
  7. WELLBUTRIN [Concomitant]
  8. ULTRAM [Concomitant]
  9. PERCOCET (OXYCOCET) TABLET [Concomitant]
  10. GABAPENTIN (GABAPENTIN) CAPSULE [Concomitant]
  11. ROSIGLITAZONE [Concomitant]
  12. GLIPIZIDE [Concomitant]
  13. INSULIN GLARGINE (INSULIN GLARGINE) [Concomitant]
  14. CITALOPRAM HYDROBROMIDE [Concomitant]
  15. INSULIN LANTUS (INSULIN) SOLUTION [Concomitant]
  16. CLONAZEPAM [Concomitant]
  17. ALLEGRA [Concomitant]
  18. ZYRTEC [Concomitant]
  19. NEXIUM [Concomitant]
  20. SUCRALFATE (SUCRALFATE) TABLET [Concomitant]

REACTIONS (33)
  - AGITATION [None]
  - APPLICATION SITE BURN [None]
  - APPLICATION SITE ERYTHEMA [None]
  - APPLICATION SITE IRRITATION [None]
  - BACK PAIN [None]
  - BLOOD PRESSURE INCREASED [None]
  - BLOOD TESTOSTERONE DECREASED [None]
  - BREAKTHROUGH PAIN [None]
  - CHEST PAIN [None]
  - COLD SWEAT [None]
  - DIABETES MELLITUS INADEQUATE CONTROL [None]
  - DIARRHOEA [None]
  - DIZZINESS [None]
  - DRUG WITHDRAWAL SYNDROME [None]
  - DYSPNOEA [None]
  - EJACULATION DELAYED [None]
  - FATIGUE [None]
  - FEELING HOT [None]
  - GENERALISED ANXIETY DISORDER [None]
  - HYPERHIDROSIS [None]
  - INSOMNIA [None]
  - LIBIDO DECREASED [None]
  - MAJOR DEPRESSION [None]
  - NAUSEA [None]
  - NERVOUSNESS [None]
  - NEUROPATHY PERIPHERAL [None]
  - RHINITIS ALLERGIC [None]
  - SHOULDER PAIN [None]
  - SINUSITIS [None]
  - TREMOR [None]
  - UPPER RESPIRATORY TRACT INFECTION [None]
  - URINARY HESITATION [None]
  - URINARY INCONTINENCE [None]
